FAERS Safety Report 7504826-7 (Version None)
Quarter: 2011Q2

REPORT INFORMATION
  Report Type: 
  Country: None (occurrence: None)
  Receive Date: 20110525
  Receipt Date: 20110520
  Transmission Date: 20111010
  Serious: Yes (Life-Threatening, Hospitalization, Other)
  Sender: FDA-Public Use
  Company Number: US-RB-022864-11

PATIENT
  Age: 54 Year
  Sex: Male

DRUGS (5)
  1. SUBUTEX [Suspect]
     Indication: PAIN MANAGEMENT
     Route: 060
     Dates: start: 20010101
  2. SUBUTEX [Suspect]
     Route: 060
     Dates: start: 20080101, end: 20100601
  3. SUBUTEX [Suspect]
     Indication: DRUG DEPENDENCE
     Route: 060
     Dates: end: 20080101
  4. BUPRENORPHINE HCL [Suspect]
     Indication: PAIN MANAGEMENT
     Route: 060
     Dates: start: 20080101, end: 20080101
  5. MORPHINE [Suspect]
     Indication: PAIN MANAGEMENT
     Dosage: DOSAGE INFORMATION UNKNOWN
     Route: 048
     Dates: start: 20100601

REACTIONS (6)
  - OFF LABEL USE [None]
  - MYOCARDIAL INFARCTION [None]
  - DRY MOUTH [None]
  - TOOTH DISORDER [None]
  - PULMONARY EMBOLISM [None]
  - THROMBOSIS [None]
